FAERS Safety Report 10063353 (Version 2)
Quarter: 2014Q2

REPORT INFORMATION
  Report Type: Spontaneous
  Country: DE (occurrence: DE)
  Receive Date: 20140407
  Receipt Date: 20140407
  Transmission Date: 20141212
  Serious: Yes (Life-Threatening, Other)
  Sender: FDA-Public Use
  Company Number: DE-ROXANE LABORATORIES, INC.-2013-RO-01430RO

PATIENT
  Age: 22 Year
  Sex: Male
  Weight: 64 kg

DRUGS (3)
  1. METHADONE [Suspect]
     Indication: DRUG WITHDRAWAL MAINTENANCE THERAPY
     Route: 065
  2. DELORAZEPAM [Suspect]
     Indication: DRUG WITHDRAWAL MAINTENANCE THERAPY
     Route: 065
  3. DAPTOMYCIN [Suspect]
     Indication: STAPHYLOCOCCAL INFECTION
     Route: 042

REACTIONS (5)
  - Staphylococcal skin infection [Recovered/Resolved]
  - Staphylococcal bacteraemia [Recovered/Resolved]
  - Vascular pseudoaneurysm [Recovered/Resolved]
  - Embolism arterial [Recovered/Resolved]
  - Drug clearance decreased [Recovered/Resolved]
